FAERS Safety Report 10380712 (Version 1)
Quarter: 2014Q1

REPORT INFORMATION
  Report Type: Spontaneous
  Country: US (occurrence: None)
  Receive Date: 20140306
  Receipt Date: 20140306
  Transmission Date: 20141002
  Serious: Yes (Other)
  Sender: FDA-Public Use
  Company Number: 163-21880-13084065

PATIENT
  Age: 64 Year
  Sex: Male
  Weight: 91 kg

DRUGS (6)
  1. REVLIMID (LENALIDOMIDE) (CAPSULES) [Suspect]
     Indication: MANTLE CELL LYMPHOMA
     Dosage: 25 MG, 21 IN 21 D, PO
     Route: 048
     Dates: start: 20130802, end: 20130809
  2. ATIVAN (LORAZEPAM) [Concomitant]
  3. LIPITOR (ATORVASTATIN) [Concomitant]
  4. MULTIVITAMIN [Concomitant]
  5. VIAGRA (SILDENAFIL CITRATE) [Concomitant]
  6. ZETIA (EZETIMIBE) [Concomitant]

REACTIONS (2)
  - Neutropenia [None]
  - Fungal infection [None]
